FAERS Safety Report 23999964 (Version 1)
Quarter: 2024Q2

REPORT INFORMATION
  Report Type: Spontaneous
  Country: US (occurrence: None)
  Receive Date: 20240620
  Receipt Date: 20240620
  Transmission Date: 20240716
  Serious: Yes (Disabling)
  Sender: FDA-Public Use
  Company Number: None

PATIENT
  Age: 67 Year
  Sex: Female
  Weight: 85.5 kg

DRUGS (9)
  1. XANAX [Suspect]
     Active Substance: ALPRAZOLAM
     Indication: Anxiety
     Dates: start: 19730701, end: 20230730
  2. AMBIEN [Concomitant]
     Active Substance: ZOLPIDEM TARTRATE
  3. ATORVASTATIN [Concomitant]
     Active Substance: ATORVASTATIN
  4. BAYER ASPIRIN [Concomitant]
     Active Substance: ASPIRIN
  5. CALCIUM CITRATE [Concomitant]
     Active Substance: CALCIUM CITRATE
  6. DEXLANSOPRAZOLE [Concomitant]
     Active Substance: DEXLANSOPRAZOLE
  7. Ditiazem [Concomitant]
  8. Sun Fiber [Concomitant]
  9. TRULANCE [Concomitant]
     Active Substance: PLECANATIDE

REACTIONS (15)
  - Myocardial infarction [None]
  - Therapy change [None]
  - Incorrect product administration duration [None]
  - Withdrawal syndrome [None]
  - Vibration syndrome [None]
  - Limb discomfort [None]
  - Akathisia [None]
  - Pruritus [None]
  - Burning sensation [None]
  - Sensitive skin [None]
  - Formication [None]
  - Hypoaesthesia [None]
  - Paraesthesia [None]
  - Jaw disorder [None]
  - Female reproductive tract disorder [None]

NARRATIVE: CASE EVENT DATE: 20230730
